FAERS Safety Report 8839452 (Version 1)
Quarter: 2012Q4

REPORT INFORMATION
  Report Type: 
  Country: IE (occurrence: IE)
  Receive Date: 20121015
  Receipt Date: 20121015
  Transmission Date: 20130627
  Serious: Yes (Death)
  Sender: FDA-Public Use
  Company Number: IE-MILLENNIUM PHARMACEUTICALS, INC.-2012-07084

PATIENT

DRUGS (12)
  1. VELCADE [Suspect]
     Indication: ACTINOMYCOSIS
     Dosage: 1.3 mg/m2, Cyclic
     Route: 042
     Dates: start: 20120705, end: 20120823
  2. WARFARIN [Concomitant]
  3. ATORVASTATIN [Concomitant]
  4. DEXAMETHASONE [Concomitant]
     Dosage: 10 mg, UNK
  5. HYTRIN [Concomitant]
  6. VALTREX [Concomitant]
  7. ZOFRAN                             /00955301/ [Concomitant]
     Dosage: 30 mg, UNK
  8. MOTILIUM                           /00498201/ [Concomitant]
  9. FUROSEMIDE [Concomitant]
  10. SENOKOT                            /00142201/ [Concomitant]
  11. PANADOL                            /00020001/ [Concomitant]
  12. CYCLOPHOSPHAMIDE [Concomitant]
     Dosage: 350 mg, UNK

REACTIONS (2)
  - Death [Fatal]
  - Off label use [Unknown]
